FAERS Safety Report 10762291 (Version 1)
Quarter: 2015Q1

REPORT INFORMATION
  Report Type: Spontaneous
  Country: US (occurrence: US)
  Receive Date: 20150204
  Receipt Date: 20150204
  Transmission Date: 20150721
  Serious: Yes (Death)
  Sender: FDA-Public Use
  Company Number: US-PERRIGO-15US001166

PATIENT
  Age: 48 Year
  Sex: Male

DRUGS (2)
  1. METHIMAZOLE. [Suspect]
     Active Substance: METHIMAZOLE
     Indication: ADVERSE DRUG REACTION
     Dosage: UNK, UNK
     Route: 048
  2. ACETAMINOPHEN 650MG ER 544 [Suspect]
     Active Substance: ACETAMINOPHEN
     Indication: ADVERSE DRUG REACTION
     Dosage: UNK, UNK
     Route: 048

REACTIONS (1)
  - Death [Fatal]
